FAERS Safety Report 20141588 (Version 1)
Quarter: 2021Q4

REPORT INFORMATION
  Report Type: Spontaneous
  Country: US (occurrence: None)
  Receive Date: 20211202
  Receipt Date: 20211202
  Transmission Date: 20220303
  Serious: No
  Sender: FDA-Public Use
  Company Number: None

PATIENT
  Age: 60 Year
  Sex: Female
  Weight: 90 kg

DRUGS (3)
  1. ABILIFY [Suspect]
     Active Substance: ARIPIPRAZOLE
     Indication: Schizoaffective disorder bipolar type
     Dosage: OTHER FREQUENCY : EVERY 28 DAYS;?
     Route: 030
     Dates: start: 20211104
  2. BUPROPION [Concomitant]
     Active Substance: BUPROPION
  3. BC Fast Pain Relief Arthritis [Concomitant]

REACTIONS (4)
  - Panic attack [None]
  - Palpitations [None]
  - Fatigue [None]
  - Tremor [None]

NARRATIVE: CASE EVENT DATE: 20211104
